FAERS Safety Report 25212862 (Version 1)
Quarter: 2025Q2

REPORT INFORMATION
  Report Type: Spontaneous
  Country: US (occurrence: US)
  Receive Date: 20250418
  Receipt Date: 20250418
  Transmission Date: 20250716
  Serious: No
  Sender: AUROBINDO
  Company Number: US-AUROBINDO-AUR-APL-2025-000288

PATIENT
  Age: 64 Year
  Sex: Male
  Weight: 112.9 kg

DRUGS (2)
  1. ARMODAFINIL [Suspect]
     Active Substance: ARMODAFINIL
     Indication: Product used for unknown indication
     Dosage: 3 DOSAGE FORM, ONCE A DAY (50 MG IN THE MORNING, NOON, AND EVENING)
     Route: 065
  2. ARMODAFINIL [Suspect]
     Active Substance: ARMODAFINIL
     Route: 065

REACTIONS (2)
  - Insomnia [Recovered/Resolved]
  - Delayed sleep phase [Recovered/Resolved]
